FAERS Safety Report 8555547 (Version 3)
Quarter: 2013Q2

REPORT INFORMATION
  Report Type: Spontaneous
  Country: DE (occurrence: DE)
  Receive Date: 20120510
  Receipt Date: 20130531
  Transmission Date: 20140414
  Serious: Yes (Hospitalization)
  Sender: FDA-Public Use
  Company Number: DE-AMGEN-DEUSP2012027857

PATIENT
  Age: 62 Year
  Sex: Male

DRUGS (4)
  1. ENBREL [Suspect]
     Indication: PSORIATIC ARTHROPATHY
     Dosage: 50 MG, WEEKLY
     Route: 065
     Dates: start: 20100401, end: 201110
  2. PREDNISOLON                        /00016201/ [Concomitant]
     Dosage: 4 MG, UNK
  3. ARAVA [Concomitant]
     Dosage: 20 MG, UNK
  4. OMEPRAZOL                          /00661201/ [Concomitant]
     Dosage: UNK

REACTIONS (3)
  - Nephrolithiasis [Not Recovered/Not Resolved]
  - Cholelithiasis [Not Recovered/Not Resolved]
  - Pneumonia [Not Recovered/Not Resolved]
